FAERS Safety Report 16254642 (Version 1)
Quarter: 2019Q2

REPORT INFORMATION
  Report Type: Spontaneous
  Country: FR (occurrence: FR)
  Receive Date: 20190430
  Receipt Date: 20190430
  Transmission Date: 20190711
  Serious: Yes (Hospitalization)
  Sender: FDA-Public Use
  Company Number: FR-ACCORD-124698

PATIENT
  Sex: Male
  Weight: 61 kg

DRUGS (9)
  1. IMUREL [Concomitant]
     Active Substance: AZATHIOPRINE SODIUM
     Indication: INTERSTITIAL LUNG DISEASE
     Route: 048
     Dates: start: 20170710, end: 20180205
  2. RITUXIMAB. [Concomitant]
     Active Substance: RITUXIMAB
     Dosage: 1G PAR CURE
     Route: 041
     Dates: start: 20180728, end: 20180813
  3. LASILIX [Concomitant]
     Active Substance: FUROSEMIDE
     Indication: OEDEMA PERIPHERAL
     Route: 048
     Dates: start: 20180730
  4. SOLUPRED [Concomitant]
     Indication: INTERSTITIAL LUNG DISEASE
     Route: 048
     Dates: start: 20170119
  5. CISPLATIN. [Suspect]
     Active Substance: CISPLATIN
     Indication: GENITAL CANCER MALE
     Route: 041
     Dates: start: 20160409, end: 20160630
  6. TAHOR [Concomitant]
     Active Substance: ATORVASTATIN CALCIUM
     Indication: DYSLIPIDAEMIA
     Route: 048
  7. KARDEGIC [Concomitant]
     Active Substance: ASPIRIN DL-LYSINE
     Indication: PERIPHERAL ARTERIAL OCCLUSIVE DISEASE
     Route: 048
  8. PACLITAXEL/PACLITAXEL LIPOSOME [Suspect]
     Active Substance: PACLITAXEL
     Indication: GENITAL CANCER MALE
     Route: 041
     Dates: start: 20160409, end: 20160630
  9. IFOSFAMIDE. [Suspect]
     Active Substance: IFOSFAMIDE
     Indication: GENITAL CANCER MALE
     Route: 041
     Dates: start: 20160409, end: 20160630

REACTIONS (2)
  - Interstitial lung disease [Not Recovered/Not Resolved]
  - Raynaud^s phenomenon [Not Recovered/Not Resolved]

NARRATIVE: CASE EVENT DATE: 20160601
